FAERS Safety Report 18006298 (Version 2)
Quarter: 2020Q3

REPORT INFORMATION
  Report Type: Report from Study
  Country: BR (occurrence: BR)
  Receive Date: 20200709
  Receipt Date: 20200903
  Transmission Date: 20201103
  Serious: Yes (Hospitalization)
  Sender: FDA-Public Use
  Company Number: BR-UCBSA-2020026497

PATIENT
  Age: 62 Year
  Sex: Female
  Weight: 75 kg

DRUGS (5)
  1. GLIFAGE [Concomitant]
     Active Substance: METFORMIN HYDROCHLORIDE
     Indication: PRODUCT USED FOR UNKNOWN INDICATION
     Dosage: UNK
     Route: 048
  2. TRAMADOL. [Concomitant]
     Active Substance: TRAMADOL
     Indication: PAIN
     Dosage: UNK
     Route: 042
     Dates: start: 20200630, end: 20200630
  3. CERTOLIZUMAB PEGOL RA [Suspect]
     Active Substance: CERTOLIZUMAB PEGOL
     Indication: RHEUMATOID ARTHRITIS
     Dosage: 400 MILLIGRAM, EV 4 WEEKS
     Route: 058
     Dates: start: 2018, end: 202007
  4. DIPIRONA [Concomitant]
     Active Substance: METAMIZOLE
     Indication: PAIN
     Dosage: 500 MILLIGRAM, 3X/DAY (TID)
     Route: 048
  5. DIPIRONA [Concomitant]
     Active Substance: METAMIZOLE
     Dosage: 500 MILLIGRAM, 6X/DAY
     Route: 048

REACTIONS (5)
  - Bacterial infection [Not Recovered/Not Resolved]
  - Contusion [Not Recovered/Not Resolved]
  - Nasal inflammation [Not Recovered/Not Resolved]
  - Memory impairment [Not Recovered/Not Resolved]
  - Rheumatoid arthritis [Not Recovered/Not Resolved]

NARRATIVE: CASE EVENT DATE: 201911
